FAERS Safety Report 5670847-2 (Version None)
Quarter: 2008Q1

REPORT INFORMATION
  Report Type: 
  Country: None (occurrence: None)
  Receive Date: 20080317
  Receipt Date: 20080317
  Transmission Date: 20080703
  Serious: No
  Sender: FDA-Public Use
  Company Number: None

PATIENT
  Sex: Female

DRUGS (1)
  1. FORTEO [Suspect]
     Indication: MULTIPLE SCLEROSIS
     Dosage: 20 MCG DAILY SQ
     Route: 058

REACTIONS (6)
  - ARTHRALGIA [None]
  - BALANCE DISORDER [None]
  - CHEST PAIN [None]
  - CONSTIPATION [None]
  - RASH PRURITIC [None]
  - TREMOR [None]
